FAERS Safety Report 6154291-X (Version None)
Quarter: 2009Q2

REPORT INFORMATION
  Report Type: 
  Country: None (occurrence: None)
  Receive Date: 20090410
  Receipt Date: 20090330
  Transmission Date: 20091009
  Serious: Yes (Hospitalization)
  Sender: FDA-Public Use
  Company Number: 2009-193429-NL

PATIENT
  Age: 13 Year
  Sex: Female

DRUGS (5)
  1. DEXAMETHASONE [Suspect]
     Indication: ASTHMA
     Dosage: 3 DF ; 2 DF ; 250 MG INTRAVENOUS (NOS)
     Route: 042
     Dates: start: 20090316, end: 20090316
  2. DEXAMETHASONE [Suspect]
     Indication: ASTHMA
     Dosage: 3 DF ; 2 DF ; 250 MG INTRAVENOUS (NOS)
     Route: 042
     Dates: start: 20061011
  3. DEXAMETHASONE [Suspect]
     Indication: ASTHMA
     Dosage: 3 DF ; 2 DF ; 250 MG INTRAVENOUS (NOS)
     Route: 042
     Dates: start: 20070309
  4. DEXTROSE 5% [Concomitant]
  5. AMINOPHYLLIN [Suspect]
     Dosage: DF

REACTIONS (2)
  - DYSSTASIA [None]
  - HYPOAESTHESIA [None]
